FAERS Safety Report 5287163-3 (Version None)
Quarter: 2007Q2

REPORT INFORMATION
  Report Type: 
  Country: None (occurrence: None)
  Receive Date: 20070404
  Receipt Date: 20070323
  Transmission Date: 20071010
  Serious: Yes (Other)
  Sender: FDA-Public Use
  Company Number: US-PFIZER INC-2007019302

PATIENT
  Sex: Male
  Weight: 79.4 kg

DRUGS (2)
  1. CHANTIX [Suspect]
     Dates: start: 20070301, end: 20070301
  2. DRUG, UNSPECIFIED [Concomitant]

REACTIONS (3)
  - DRUG HYPERSENSITIVITY [None]
  - HALLUCINATION [None]
  - WEIGHT DECREASED [None]
